FAERS Safety Report 7290280-X (Version None)
Quarter: 2011Q1

REPORT INFORMATION
  Report Type: 
  Country: None (occurrence: None)
  Receive Date: 20110214
  Receipt Date: 20110131
  Transmission Date: 20110831
  Serious: Yes (Life-Threatening, Hospitalization, Other)
  Sender: FDA-Public Use
  Company Number: US-CELGENEUS-163-20785-10121812

PATIENT
  Sex: Male

DRUGS (7)
  1. POTASSIUM CHLORIDE [Concomitant]
     Route: 065
  2. THALOMID [Suspect]
     Route: 048
     Dates: start: 20060301
  3. ASPIRIN [Concomitant]
     Route: 065
  4. LASIX [Concomitant]
     Route: 065
  5. LIPITOR [Concomitant]
     Route: 065
  6. THALOMID [Suspect]
     Route: 048
     Dates: start: 20061101, end: 20101201
  7. NIACIN [Concomitant]
     Route: 065

REACTIONS (4)
  - CORONARY ARTERY DISEASE [None]
  - CARDIAC FAILURE CONGESTIVE [None]
  - DRUG INEFFECTIVE [None]
  - MULTIPLE MYELOMA [None]
